FAERS Safety Report 13741388 (Version 1)
Quarter: 2017Q3

REPORT INFORMATION
  Report Type: Spontaneous
  Country: US (occurrence: US)
  Receive Date: 20170711
  Receipt Date: 20170711
  Transmission Date: 20171127
  Serious: Yes (Other)
  Sender: FDA-Public Use
  Company Number: None

PATIENT
  Age: 72 Year
  Sex: Female

DRUGS (1)
  1. CYCLOPHOSPHAMIDE. [Suspect]
     Active Substance: CYCLOPHOSPHAMIDE
     Indication: OVARIAN CANCER
     Dosage: ?          OTHER DOSE:MG;?
     Route: 048

REACTIONS (4)
  - Diarrhoea [None]
  - Anxiety [None]
  - Decreased appetite [None]
  - Urinary tract infection [None]

NARRATIVE: CASE EVENT DATE: 20170710
